FAERS Safety Report 24234276 (Version 1)
Quarter: 2024Q3

REPORT INFORMATION
  Report Type: Spontaneous
  Country: US (occurrence: None)
  Receive Date: 20240821
  Receipt Date: 20240821
  Transmission Date: 20241017
  Serious: Yes (Hospitalization)
  Sender: Public
  Company Number: None

PATIENT
  Age: 46 Year
  Sex: Male

DRUGS (3)
  1. MYCOPHENOLATE MOFETIL [Suspect]
     Active Substance: MYCOPHENOLATE MOFETIL
     Indication: Renal transplant
     Dosage: 1000MG TWICE DAILY ORAL
     Route: 048
     Dates: start: 202402
  2. TACROLIMUS [Suspect]
     Active Substance: TACROLIMUS
     Indication: Renal transplant
     Dosage: 2MG TWICE DAILY ORAL
     Route: 048
     Dates: start: 202402
  3. EVEROLIMUS [Concomitant]

REACTIONS (3)
  - Osteomyelitis [None]
  - Impaired healing [None]
  - Therapy interrupted [None]

NARRATIVE: CASE EVENT DATE: 20240715
